FAERS Safety Report 7718718-1 (Version None)
Quarter: 2011Q3

REPORT INFORMATION
  Report Type: 
  Country: None (occurrence: None)
  Receive Date: 20110830
  Receipt Date: 20110825
  Transmission Date: 20111222
  Serious: Yes (Death)
  Sender: FDA-Public Use
  Company Number: JP-BAYER-2011-017021

PATIENT
  Age: 91 Year
  Sex: Male

DRUGS (2)
  1. CIPROFLOXACIN [Suspect]
     Indication: PNEUMONIA
     Dosage: DAILY DOSE 600 MG
     Route: 041
     Dates: start: 20101228, end: 20110105
  2. IMIPENEM/CILASTATIN [Concomitant]
     Dosage: DAILY DOSE 1 G
     Route: 041
     Dates: start: 20101220, end: 20101227

REACTIONS (2)
  - PNEUMONIA [None]
  - RESPIRATORY FAILURE [None]
